FAERS Safety Report 4284788-9 (Version None)
Quarter: 2004Q1

REPORT INFORMATION
  Report Type: 
  Country: None (occurrence: None)
  Receive Date: 20040130
  Receipt Date: 20040130
  Transmission Date: 20041129
  Serious: Yes (Hospitalization, Disabling)
  Sender: FDA-Public Use
  Company Number: None

PATIENT
  Sex: Female
  Weight: 56.6996 kg

DRUGS (5)
  1. GEODON [Suspect]
     Indication: BORDERLINE PERSONALITY DISORDER
     Dosage: 20 MG/DAY INCREASED OVER 6 WEEKS TO 80MG/DAY
     Dates: start: 20030501
  2. GEODON [Suspect]
     Indication: AFFECTIVE DISORDER
     Dosage: 120 MG (40 AM 80 PM ) PO
     Route: 048
  3. NEURONTIN [Concomitant]
  4. PAXIL CR [Concomitant]
  5. ATIVAN [Concomitant]

REACTIONS (12)
  - AGITATION [None]
  - ANXIETY [None]
  - ARTHRALGIA [None]
  - BEDRIDDEN [None]
  - DIZZINESS [None]
  - HEADACHE [None]
  - MUSCLE TWITCHING [None]
  - MYALGIA [None]
  - NAUSEA [None]
  - PALPITATIONS [None]
  - PYREXIA [None]
  - VOMITING [None]
